FAERS Safety Report 5112816-7 (Version None)
Quarter: 2006Q3

REPORT INFORMATION
  Report Type: 
  Country: None (occurrence: None)
  Receive Date: 20060922
  Receipt Date: 20060919
  Transmission Date: 20061208
  Serious: Yes (Hospitalization)
  Sender: FDA-Public Use
  Company Number: AU-BOEHRINGER INGELHEIM PHARMACEUTICALS, INC.-2006-BP-11006AU

PATIENT
  Sex: Male

DRUGS (2)
  1. CATAPRES [Suspect]
     Indication: AUTISM
     Route: 048
  2. DRAMAMINE [Suspect]
     Route: 048

REACTIONS (1)
  - RESPIRATORY ARREST [None]
